FAERS Safety Report 7645214-2 (Version None)
Quarter: 2011Q3

REPORT INFORMATION
  Report Type: 
  Country: None (occurrence: None)
  Receive Date: 20110729
  Receipt Date: 20110726
  Transmission Date: 20111222
  Serious: Yes (Other)
  Sender: FDA-Public Use
  Company Number: US-PFIZER INC-2011139689

PATIENT
  Sex: Male

DRUGS (1)
  1. FIBERCON [Suspect]
     Indication: CONSTIPATION
     Dosage: DAILY
     Route: 048

REACTIONS (2)
  - ASPIRATION [None]
  - COUGH [None]
